FAERS Safety Report 17262678 (Version 1)
Quarter: 2020Q1

REPORT INFORMATION
  Report Type: Spontaneous
  Country: DE (occurrence: DE)
  Receive Date: 20200113
  Receipt Date: 20200113
  Transmission Date: 20200409
  Serious: Yes (Other)
  Sender: FDA-Public Use
  Company Number: NVSC2020DE004566

PATIENT
  Sex: Male

DRUGS (1)
  1. TAMSULOSIN - 1 A PHARMA 0,4 MG RETARDTABLETTEN [Suspect]
     Active Substance: TAMSULOSIN HYDROCHLORIDE
     Indication: PRODUCT USED FOR UNKNOWN INDICATION
     Dosage: UNK
     Route: 065

REACTIONS (2)
  - Prostatomegaly [Unknown]
  - Cataract [Unknown]
